FAERS Safety Report 14319785 (Version 2)
Quarter: 2018Q1

REPORT INFORMATION
  Report Type: Spontaneous
  Country: US (occurrence: US)
  Receive Date: 20171222
  Receipt Date: 20180130
  Transmission Date: 20180509
  Serious: No
  Sender: FDA-Public Use
  Company Number: US-009507513-1712USA011501

PATIENT
  Age: 77 Year
  Sex: Female
  Weight: 49.89 kg

DRUGS (3)
  1. GABAPENTIN. [Concomitant]
     Active Substance: GABAPENTIN
  2. TRAMADOL HYDROCHLORIDE. [Concomitant]
     Active Substance: TRAMADOL HYDROCHLORIDE
  3. BELSOMRA [Suspect]
     Active Substance: SUVOREXANT
     Indication: INSOMNIA
     Dosage: ONE 5 MG TABLET/ ONCE A DAY AT NIGHT
     Route: 048
     Dates: start: 20171204, end: 20171205

REACTIONS (3)
  - Drug ineffective [Recovering/Resolving]
  - Exposure during pregnancy [Unknown]
  - Product packaging quantity issue [Unknown]

NARRATIVE: CASE EVENT DATE: 201712
